FAERS Safety Report 18713529 (Version 2)
Quarter: 2021Q1

REPORT INFORMATION
  Report Type: Report from Study
  Country: CR (occurrence: CR)
  Receive Date: 20210107
  Receipt Date: 20210128
  Transmission Date: 20210419
  Serious: Yes (Other)
  Sender: FDA-Public Use
  Company Number: NVSC2021CR002314

PATIENT
  Age: 53 Year
  Sex: Female
  Weight: 70 kg

DRUGS (9)
  1. INDOMETHACIN. [Concomitant]
     Active Substance: INDOMETHACIN
     Indication: ARTHRITIS
     Dosage: 2 DF, Q6H (STARTED 1 YEAR AGO)
     Route: 065
  2. CLONAZEPAM. [Concomitant]
     Active Substance: CLONAZEPAM
     Indication: INSOMNIA
     Dosage: 29 DROPS AT NIGHT STARTED A LOT OF YEARS AGO UNK
     Route: 065
  3. INSULIN [Concomitant]
     Active Substance: INSULIN NOS
     Indication: DIABETES MELLITUS
     Dosage: 3 DF (3 INJECTIONS), QD
     Route: 065
     Dates: start: 2019
  4. GABAPENTIN. [Concomitant]
     Active Substance: GABAPENTIN
     Indication: SPINAL PAIN
  5. MORPHINE [Concomitant]
     Active Substance: MORPHINE
     Indication: PAIN IN EXTREMITY
     Dosage: 1 DF, Q6H (STARTED SEVERAL YEARS AGO)
     Route: 065
  6. LEVOTHYROXINE. [Concomitant]
     Active Substance: LEVOTHYROXINE
     Indication: DIABETES MELLITUS
     Dosage: 2 DF (STARTED 3 YEARS AGO), QD
     Route: 065
  7. SCAPHO [Suspect]
     Active Substance: SECUKINUMAB
     Indication: ANKYLOSING SPONDYLITIS
     Dosage: 150 MG (1 DF), QMO
     Route: 065
     Dates: start: 20201228
  8. GABAPENTIN. [Concomitant]
     Active Substance: GABAPENTIN
     Indication: PAIN IN EXTREMITY
     Dosage: 1 DF, Q8H (STARTED 1 YEAR AGO)
     Route: 065
  9. MORPHINE [Concomitant]
     Active Substance: MORPHINE
     Indication: SPINAL PAIN

REACTIONS (3)
  - Blood glucose decreased [Recovered/Resolved]
  - Hypotension [Not Recovered/Not Resolved]
  - Diabetic metabolic decompensation [Recovered/Resolved]
